FAERS Safety Report 8858899 (Version 2)
Quarter: 2013Q1

REPORT INFORMATION
  Report Type: Spontaneous
  Country: US (occurrence: None)
  Receive Date: 20121019
  Receipt Date: 20121105
  Transmission Date: 20140127
  Serious: Yes (Hospitalization)
  Sender: FDA-Public Use
  Company Number: DKLU1085242

PATIENT
  Age: 3 Year
  Sex: Female

DRUGS (3)
  1. SABRIL (TABLET) (SABRIL) (VIGABATRIN) (500 MG, TABLET) [Suspect]
     Indication: INFANTILE SPASMS
     Dosage: 10 ML MILLILITRE (S), 2 IN 1 D
     Dates: start: 20111104
  2. ONFI [Concomitant]
  3. AMOXICILLIN (AMOXICILLIN) [Concomitant]

REACTIONS (3)
  - Urinary tract infection [None]
  - Heart rate abnormal [None]
  - Convulsion [None]
